FAERS Safety Report 21973324 (Version 1)
Quarter: 2023Q1

REPORT INFORMATION
  Report Type: Spontaneous
  Country: US (occurrence: US)
  Receive Date: 20230209
  Receipt Date: 20230209
  Transmission Date: 20230417
  Serious: No
  Sender: FDA-Public Use
  Company Number: US-SA-SAC20230209000264

PATIENT
  Age: 69 Year

DRUGS (2)
  1. ALLEGRA [Suspect]
     Active Substance: FEXOFENADINE HYDROCHLORIDE
     Indication: Rash
     Dosage: UNK
     Route: 065
  2. ALLEGRA [Suspect]
     Active Substance: FEXOFENADINE HYDROCHLORIDE
     Indication: Urticaria chronic

REACTIONS (16)
  - Paraesthesia [Unknown]
  - Swelling [Unknown]
  - Peripheral coldness [Unknown]
  - Feeling hot [Unknown]
  - Acne [Unknown]
  - Pain [Unknown]
  - Nervousness [Unknown]
  - Limb injury [Unknown]
  - Pain in extremity [Unknown]
  - Illness [Unknown]
  - Erythema [Unknown]
  - Chills [Unknown]
  - Paraesthesia oral [Unknown]
  - Oropharyngeal pain [Unknown]
  - Feeling hot [Unknown]
  - Eye ulcer [Unknown]
